APPROVED DRUG PRODUCT: TOLAZAMIDE
Active Ingredient: TOLAZAMIDE
Strength: 100MG
Dosage Form/Route: TABLET;ORAL
Application: A071633 | Product #001
Applicant: CHARTWELL RX SCIENCES LLC
Approved: Dec 9, 1987 | RLD: No | RS: No | Type: DISCN